FAERS Safety Report 6299579-7 (Version None)
Quarter: 2009Q3

REPORT INFORMATION
  Report Type: 
  Country: None (occurrence: None)
  Receive Date: 20090805
  Receipt Date: 20090805
  Transmission Date: 20100115
  Serious: Yes (Hospitalization)
  Sender: FDA-Public Use
  Company Number: None

PATIENT
  Age: 28 Year
  Sex: Female
  Weight: 72.5755 kg

DRUGS (2)
  1. CYMBALTA [Suspect]
     Indication: ARTHRALGIA
     Dosage: 30 MG TO 60 MG DAILY PO
     Route: 048
     Dates: start: 20080312, end: 20080318
  2. CYMBALTA [Suspect]
     Indication: PAIN IN EXTREMITY
     Dosage: 30 MG TO 60 MG DAILY PO
     Route: 048
     Dates: start: 20080312, end: 20080318

REACTIONS (2)
  - MANIA [None]
  - PSYCHOTIC DISORDER [None]
